FAERS Safety Report 8408333-9 (Version None)
Quarter: 2012Q2

REPORT INFORMATION
  Report Type: 
  Country: None (occurrence: None)
  Receive Date: 20120531
  Receipt Date: 20120531
  Transmission Date: 20120825
  Serious: Yes (Death)
  Sender: FDA-Public Use
  Company Number: None

PATIENT
  Sex: Female
  Weight: 96.1626 kg

DRUGS (6)
  1. FRAGMIN [Concomitant]
  2. TEMOZOLOMIDE [Concomitant]
  3. BEVACIZUMAB 975 MG GENENTECH [Suspect]
     Indication: GLIOBLASTOMA MULTIFORME
     Dosage: 10 MG/KG (975 MG) Q2WWEEKS
     Dates: start: 20110912, end: 20120216
  4. ZOFRAN [Concomitant]
  5. PRAVASTATIN [Concomitant]
  6. ACETAMINOPHEN [Concomitant]

REACTIONS (6)
  - RADIATION NECROSIS [None]
  - PAIN IN EXTREMITY [None]
  - BRAIN OEDEMA [None]
  - LOSS OF CONSCIOUSNESS [None]
  - CONVULSION [None]
  - PULMONARY OEDEMA [None]
